FAERS Safety Report 4647529-9 (Version None)
Quarter: 2005Q2

REPORT INFORMATION
  Report Type: 
  Country: None (occurrence: None)
  Receive Date: 20050426
  Receipt Date: 20050413
  Transmission Date: 20051028
  Serious: No
  Sender: FDA-Public Use
  Company Number: 230006M05CAN

PATIENT
  Sex: Male

DRUGS (1)
  1. REBIF [Suspect]
     Dates: start: 19950101

REACTIONS (2)
  - GASTROINTESTINAL CARCINOMA [None]
  - METASTASES TO BONE [None]
